FAERS Safety Report 6436532-4 (Version None)
Quarter: 2009Q4

REPORT INFORMATION
  Report Type: 
  Country: None (occurrence: None)
  Receive Date: 20091111
  Receipt Date: 20091028
  Transmission Date: 20100525
  Serious: Yes (Other)
  Sender: FDA-Public Use
  Company Number: EG-GENENTECH-293343

PATIENT
  Age: 51 Year

DRUGS (1)
  1. AVASTIN [Suspect]
     Indication: COLORECTAL CANCER METASTATIC
     Dosage: 400 MG, Q2W
     Route: 042

REACTIONS (1)
  - CHEST PAIN [None]
